FAERS Safety Report 16370934 (Version 3)
Quarter: 2019Q4

REPORT INFORMATION
  Report Type: Report from Study
  Country: FR (occurrence: FR)
  Receive Date: 20190530
  Receipt Date: 20191115
  Transmission Date: 20200122
  Serious: Yes (Hospitalization)
  Sender: FDA-Public Use
  Company Number: FR-ROCHE-2324388

PATIENT
  Age: 72 Year
  Sex: Female
  Weight: 47 kg

DRUGS (3)
  1. VENETOCLAX. [Suspect]
     Active Substance: VENETOCLAX
     Indication: CHRONIC LYMPHOCYTIC LEUKAEMIA
     Dosage: ON 19/MAY/2019, SHE RECEIVED THE MOST RECENT DOSE OF VENETOCLAX.
     Route: 048
     Dates: start: 20190213
  2. OBINUTUZUMAB. [Suspect]
     Active Substance: OBINUTUZUMAB
     Indication: CHRONIC LYMPHOCYTIC LEUKAEMIA
     Dosage: ON 02/MAY/2019, SHE RECEIVED THE MOST RECENT DOSE OF OBINUTUZUMAB.
     Route: 042
     Dates: start: 20190206
  3. ATEZOLIZUMAB. [Suspect]
     Active Substance: ATEZOLIZUMAB
     Indication: CHRONIC LYMPHOCYTIC LEUKAEMIA
     Dosage: ON 03/MAY/2019, SHE RECEIVED THE MOST RECENT DOSE OF ATEZOLIZUMAB.
     Route: 042
     Dates: start: 20190207

REACTIONS (1)
  - Lung disorder [Recovered/Resolved]

NARRATIVE: CASE EVENT DATE: 20190520
